FAERS Safety Report 23740762 (Version 3)
Quarter: 2024Q2

REPORT INFORMATION
  Report Type: Spontaneous
  Country: US (occurrence: US)
  Receive Date: 20240415
  Receipt Date: 20240611
  Transmission Date: 20240716
  Serious: No
  Sender: FDA-Public Use
  Company Number: US-APOTEX-2024AP004188

PATIENT
  Sex: Male

DRUGS (3)
  1. TRAVOPROST [Suspect]
     Active Substance: TRAVOPROST
     Indication: Product used for unknown indication
     Dosage: 2 DOSAGE FORM, Q.H.S.
     Route: 047
  2. TRAVOPROST [Suspect]
     Active Substance: TRAVOPROST
     Dosage: 2 DOSAGE FORM, Q.H.S.
     Route: 047
     Dates: start: 202403
  3. TRAVOPROST [Suspect]
     Active Substance: TRAVOPROST
     Dosage: 2 DOSAGE FORM, Q.H.S.
     Route: 047
     Dates: start: 2024

REACTIONS (2)
  - Extra dose administered [Unknown]
  - Product delivery mechanism issue [Unknown]
